FAERS Safety Report 16642045 (Version 1)
Quarter: 2019Q3

REPORT INFORMATION
  Report Type: Spontaneous
  Country: IE (occurrence: IE)
  Receive Date: 20190729
  Receipt Date: 20190729
  Transmission Date: 20191004
  Serious: Yes (Other)
  Sender: FDA-Public Use
  Company Number: IE-PFIZER INC-2019314686

PATIENT
  Age: 23 Year
  Sex: Female

DRUGS (5)
  1. MEROPENEM. [Suspect]
     Active Substance: MEROPENEM
     Dosage: VIAL
     Route: 065
  2. SODIUM CHLORIDE. [Suspect]
     Active Substance: SODIUM CHLORIDE
     Indication: MEDICATION DILUTION
     Dosage: SOLVENT FOR TOBRAMYCIN
     Route: 042
     Dates: start: 20190629, end: 2019
  3. SODIUM CHLORIDE. [Suspect]
     Active Substance: SODIUM CHLORIDE
     Dosage: SOLVENT FOR MEROPENEM
     Route: 065
  4. TOBRAMYCIN. [Suspect]
     Active Substance: TOBRAMYCIN
     Dosage: 420 MG, UNK
     Route: 042
     Dates: start: 20190629, end: 2019
  5. TOBRAMYCIN. [Suspect]
     Active Substance: TOBRAMYCIN
     Dosage: 420 MG, UNK
     Route: 042
     Dates: start: 20190629, end: 2019

REACTIONS (1)
  - Catheter site infection [Unknown]

NARRATIVE: CASE EVENT DATE: 20190629
